FAERS Safety Report 4297554-5 (Version None)
Quarter: 2004Q1

REPORT INFORMATION
  Report Type: 
  Country: None (occurrence: None)
  Receive Date: 20040217
  Receipt Date: 20040217
  Transmission Date: 20041129
  Serious: Yes (Other)
  Sender: FDA-Public Use
  Company Number: None

PATIENT
  Age: 20 Year
  Sex: Female
  Weight: 61.2356 kg

DRUGS (2)
  1. SPIRONOLACTONE [Suspect]
     Indication: ACNE
     Dosage: 50 MG QID ORAL
     Route: 048
     Dates: start: 20031125, end: 20040203
  2. ULTRACET [Concomitant]

REACTIONS (3)
  - HYPOAESTHESIA [None]
  - PAIN IN EXTREMITY [None]
  - PARAESTHESIA [None]
